FAERS Safety Report 23532819 (Version 3)
Quarter: 2024Q4

REPORT INFORMATION
  Report Type: Spontaneous
  Country: IT (occurrence: IT)
  Receive Date: 20240216
  Receipt Date: 20241224
  Transmission Date: 20250114
  Serious: Yes (Other)
  Sender: AUROBINDO
  Company Number: IT-BRUNO-20240021

PATIENT
  Age: 42 Year
  Sex: Female

DRUGS (8)
  1. METFORMIN HYDROCHLORIDE [Suspect]
     Active Substance: METFORMIN HYDROCHLORIDE
     Indication: Type 2 diabetes mellitus
     Dosage: 2000 MILLIGRAM, ONCE A DAY
     Route: 065
     Dates: start: 2018, end: 2023
  2. ATORVASTATIN [Suspect]
     Active Substance: ATORVASTATIN
     Indication: Dyslipidaemia
     Dosage: UNK
     Route: 065
     Dates: start: 2018, end: 2023
  3. DULAGLUTIDE [Suspect]
     Active Substance: DULAGLUTIDE
     Indication: Type 2 diabetes mellitus
     Dosage: 0.75 MILLIGRAM, EVERY WEEK
     Route: 065
     Dates: start: 202202, end: 202208
  4. DULAGLUTIDE [Suspect]
     Active Substance: DULAGLUTIDE
     Dosage: 1.5 MILLIGRAM, EVERY WEEK
     Route: 065
     Dates: start: 202208, end: 2023
  5. METHYLDOPA [Suspect]
     Active Substance: METHYLDOPA
     Indication: Blood pressure measurement
     Dosage: UNK
     Route: 065
  6. IRON [Suspect]
     Active Substance: IRON
     Indication: Anaemia
     Dosage: UNK
     Route: 042
  7. INSULIN LISPRO [Suspect]
     Active Substance: INSULIN LISPRO
     Indication: Type 2 diabetes mellitus
     Dosage: 100 UNITS/MILLILITER, BEFORE BREAKFAST,
     Route: 065
  8. INSULIN GLARGINE [Suspect]
     Active Substance: INSULIN GLARGINE
     Indication: Type 2 diabetes mellitus
     Dosage: 300 UNITS/MILLILITER
     Route: 065

REACTIONS (5)
  - Polyhydramnios [Recovered/Resolved]
  - Exposure during pregnancy [Recovered/Resolved]
  - Drug ineffective [Recovered/Resolved]
  - Blood pressure abnormal [Unknown]
  - Glycosylated haemoglobin increased [Unknown]
